FAERS Safety Report 16287930 (Version 2)
Quarter: 2019Q2

REPORT INFORMATION
  Report Type: Spontaneous
  Country: US (occurrence: US)
  Receive Date: 20190508
  Receipt Date: 20190521
  Transmission Date: 20190711
  Serious: Yes (Hospitalization, Other)
  Sender: FDA-Public Use
  Company Number: US-ASTRAZENECA-2019SE66203

PATIENT
  Age: 26215 Day
  Sex: Male

DRUGS (13)
  1. ONGLYZA [Suspect]
     Active Substance: SAXAGLIPTIN HYDROCHLORIDE
     Indication: TYPE 2 DIABETES MELLITUS
     Dosage: 5.0MG UNKNOWN
     Route: 048
     Dates: start: 20150205
  2. LISINOPRIL. [Concomitant]
     Active Substance: LISINOPRIL
  3. DILTIAZEM. [Concomitant]
     Active Substance: DILTIAZEM
  4. WARFARIN [Concomitant]
     Active Substance: WARFARIN
  5. SIMVASTATIN. [Concomitant]
     Active Substance: SIMVASTATIN
  6. METFORMIN [Concomitant]
     Active Substance: METFORMIN HYDROCHLORIDE
  7. ONGLYZA [Suspect]
     Active Substance: SAXAGLIPTIN HYDROCHLORIDE
     Indication: TYPE 2 DIABETES MELLITUS
     Dosage: 5.0MG UNKNOWN
     Route: 048
     Dates: start: 20101030, end: 201504
  8. AMOXICILLIN. [Concomitant]
     Active Substance: AMOXICILLIN
  9. METOPROLOL. [Concomitant]
     Active Substance: METOPROLOL
  10. GLIPIZIDE. [Concomitant]
     Active Substance: GLIPIZIDE
  11. PRAVASTATIN. [Concomitant]
     Active Substance: PRAVASTATIN
  12. ALLOPURINOL. [Concomitant]
     Active Substance: ALLOPURINOL
  13. SERTRALINE [Concomitant]
     Active Substance: SERTRALINE HYDROCHLORIDE

REACTIONS (3)
  - Cardiac failure congestive [Unknown]
  - Acute left ventricular failure [Unknown]
  - Cardiac failure [Unknown]

NARRATIVE: CASE EVENT DATE: 20170417
